FAERS Safety Report 13995009 (Version 1)
Quarter: 2017Q3

REPORT INFORMATION
  Report Type: Spontaneous
  Country: AR (occurrence: AR)
  Receive Date: 20170921
  Receipt Date: 20170921
  Transmission Date: 20171128
  Serious: Yes (Hospitalization, Other)
  Sender: FDA-Public Use
  Company Number: AR-AMGEN-ARGSP2014007353

PATIENT
  Age: 70 Year
  Sex: Female

DRUGS (1)
  1. ENBREL [Suspect]
     Active Substance: ETANERCEPT
     Indication: PSORIATIC ARTHROPATHY
     Dosage: 50 MG, WEEKLY
     Route: 065
     Dates: start: 20080728

REACTIONS (10)
  - Fall [Recovered/Resolved]
  - Pneumonia [Unknown]
  - Hepatic pain [Recovered/Resolved]
  - Hepatic steatosis [Not Recovered/Not Resolved]
  - Influenza [Unknown]
  - Dehydration [Unknown]
  - Bronchitis [Unknown]
  - Injury [Recovered/Resolved]
  - Syncope [Recovered/Resolved]
  - Intervertebral disc protrusion [Not Recovered/Not Resolved]

NARRATIVE: CASE EVENT DATE: 20131226
